FAERS Safety Report 4938449-0 (Version None)
Quarter: 2006Q1

REPORT INFORMATION
  Report Type: 
  Country: None (occurrence: None)
  Receive Date: 20060308
  Receipt Date: 20060308
  Transmission Date: 20060701
  Serious: Yes (Death, Hospitalization)
  Sender: FDA-Public Use
  Company Number: None

PATIENT
  Sex: Female
  Weight: 81.3 kg

DRUGS (6)
  1. METHOTREXATE [Suspect]
     Indication: B PRECURSOR TYPE ACUTE LEUKAEMIA
     Dosage: 60 MG
     Dates: start: 20051019, end: 20060104
  2. METHOTREXATE [Suspect]
     Indication: PRECURSOR B-LYMPHOBLASTIC LYMPHOMA
     Dosage: 60 MG
     Dates: start: 20051019, end: 20060104
  3. DOXORUBICIN HCL [Suspect]
     Dosage: 132 MG
     Dates: start: 20051024, end: 20051107
  4. DEXAMETHASONE TAB [Suspect]
     Dosage: 252 MG
     Dates: start: 20051024, end: 20051113
  5. CYTARABINE [Suspect]
     Dosage: 1040 MG
     Dates: start: 20051121, end: 20051201
  6. CYCLOPHOSPHAMIDE [Suspect]
     Dosage: 1700 MG
     Dates: start: 20051121, end: 20051121

REACTIONS (16)
  - BLOOD BILIRUBIN INCREASED [None]
  - BONE MARROW FAILURE [None]
  - DIALYSIS [None]
  - ENTEROCOCCAL SEPSIS [None]
  - FUNGAL SEPSIS [None]
  - GENERAL PHYSICAL HEALTH DETERIORATION [None]
  - HYPOTENSION [None]
  - METABOLIC ACIDOSIS [None]
  - MULTI-ORGAN FAILURE [None]
  - NERVOUS SYSTEM DISORDER [None]
  - PANCYTOPENIA [None]
  - POOR PERIPHERAL CIRCULATION [None]
  - RENAL FAILURE [None]
  - RESPIRATORY FAILURE [None]
  - TACHYCARDIA [None]
  - THERAPY NON-RESPONDER [None]
